FAERS Safety Report 21914119 (Version 1)
Quarter: 2023Q1

REPORT INFORMATION
  Report Type: Spontaneous
  Country: US (occurrence: US)
  Receive Date: 20230126
  Receipt Date: 20230126
  Transmission Date: 20230417
  Serious: No
  Sender: FDA-Public Use
  Company Number: US-ALLERGAN-2228789US

PATIENT
  Age: 23 Year
  Sex: Female

DRUGS (2)
  1. BOTOX COSMETIC [Suspect]
     Active Substance: ONABOTULINUMTOXINA
     Indication: Lip cosmetic procedure
     Dosage: UNK, SINGLE
     Dates: start: 20220809, end: 20220809
  2. HYALURONIC ACID [Suspect]
     Active Substance: HYALURONIC ACID
     Indication: Lip cosmetic procedure

REACTIONS (7)
  - Off label use [Unknown]
  - Lip swelling [Recovering/Resolving]
  - Discomfort [Unknown]
  - Nausea [Recovered/Resolved]
  - Dermal filler reaction [Recovering/Resolving]
  - Rheumatoid arthritis [Unknown]
  - Product preparation error [Unknown]

NARRATIVE: CASE EVENT DATE: 20220801
